FAERS Safety Report 7892927-3 (Version None)
Quarter: 2011Q4

REPORT INFORMATION
  Report Type: 
  Country: None (occurrence: None)
  Receive Date: 20111104
  Receipt Date: 20110711
  Transmission Date: 20120403
  Serious: Yes (Hospitalization)
  Sender: FDA-Public Use
  Company Number: SE-B.I. PHARMACEUTICALS,INC./RIDGEFIELD-2011-SW-00293SW

PATIENT
  Sex: Female

DRUGS (5)
  1. ASPIRIN AND DIPYRIDAMOLE [Concomitant]
     Dosage: STRENGTH: 200MG/25MG
  2. SIMVASTATIN [Concomitant]
  3. CITALOPRAM HYDROBROMIDE [Concomitant]
  4. PERSANTIN [Suspect]
     Route: 048
  5. ASPIRIN [Concomitant]

REACTIONS (1)
  - CEREBRAL INFARCTION [None]
